FAERS Safety Report 8894493 (Version 1)
Quarter: 2012Q4

REPORT INFORMATION
  Report Type: 
  Country: US (occurrence: US)
  Receive Date: 20121107
  Receipt Date: 20121107
  Transmission Date: 20130627
  Serious: No
  Sender: FDA-Public Use
  Company Number: US-AMGEN-USASP2011059342

PATIENT
  Age: 76 Year

DRUGS (10)
  1. ENBREL [Suspect]
     Indication: PRODUCT USED FOR UNKNOWN INDICATION
     Dosage: 50 mg, 2 times/wk
     Route: 058
  2. METHOTREXATE [Concomitant]
     Dosage: 2.5 mg, UNK
  3. CARDIZEM CD [Concomitant]
     Dosage: 180 mg, UNK
  4. METOPROLOL TARTRAS [Concomitant]
     Dosage: 100 mg, UNK
  5. FOLIC ACID [Concomitant]
     Dosage: 1 mg, UNK
  6. WARFARIN [Concomitant]
     Dosage: 1 mg, UNK
  7. LEXAPRO [Concomitant]
     Dosage: 20 mg, UNK
  8. MULTIVITAMINS PLUS IRON [Concomitant]
  9. TRAMADOL HCL [Concomitant]
     Dosage: 200 mg, UNK
  10. VISION PLUS [Concomitant]

REACTIONS (1)
  - Injection site bruising [Unknown]
